FAERS Safety Report 12786278 (Version 1)
Quarter: 2016Q3

REPORT INFORMATION
  Report Type: Spontaneous
  Country: US (occurrence: US)
  Receive Date: 20160927
  Receipt Date: 20160927
  Transmission Date: 20161109
  Serious: No
  Sender: FDA-Public Use
  Company Number: US-FRI-1000086150

PATIENT
  Age: 84 Year
  Sex: Female

DRUGS (11)
  1. 75/25 INSULIN [Concomitant]
     Indication: DIABETES MELLITUS
     Dosage: 15 UNITS IN MORNING AND 15 UNITS AT DINNER
  2. BABY ASPIRIN [Concomitant]
     Active Substance: ASPIRIN
     Dosage: UNK
     Route: 048
  3. METFORMIN HCL UNK [Concomitant]
     Indication: DIABETES MELLITUS
     Dosage: 2 TIMES DAILY
     Route: 048
  4. LORAZEPAM. [Concomitant]
     Active Substance: LORAZEPAM
     Dosage: UNK
     Route: 048
  5. UNSPECIFIED ANTIDEPRESSANT [Concomitant]
     Dosage: UNK
     Route: 048
  6. LIPITOR [Concomitant]
     Active Substance: ATORVASTATIN CALCIUM
     Indication: BLOOD CHOLESTEROL INCREASED
     Dosage: UNK
     Route: 048
  7. LINZESS [Suspect]
     Active Substance: LINACLOTIDE
     Indication: CONSTIPATION
     Dosage: 290 ?G, QD
     Route: 048
     Dates: start: 20160706, end: 20160713
  8. CALICUM + VITAMIN D [Concomitant]
     Dosage: UNK
     Route: 048
  9. CLONAZEPAM. [Concomitant]
     Active Substance: CLONAZEPAM
     Dosage: UNK
     Route: 048
  10. GABAPENTIN. [Concomitant]
     Active Substance: GABAPENTIN
     Dosage: TWICE DIALY
     Route: 048
  11. ALEVE [Concomitant]
     Active Substance: NAPROXEN SODIUM
     Dosage: AT BEDTIME
     Route: 048

REACTIONS (2)
  - Off label use [Recovered/Resolved]
  - Diarrhoea [Recovered/Resolved]

NARRATIVE: CASE EVENT DATE: 20160706
